FAERS Safety Report 24741030 (Version 1)
Quarter: 2024Q4

REPORT INFORMATION
  Report Type: Spontaneous
  Country: US (occurrence: US)
  Receive Date: 20241217
  Receipt Date: 20241217
  Transmission Date: 20250115
  Serious: Yes (Other)
  Sender: SPECGX
  Company Number: US-SPECGX-T202401878

PATIENT
  Age: 79 Year
  Sex: Male

DRUGS (11)
  1. POSACONAZOLE [Suspect]
     Active Substance: POSACONAZOLE
     Indication: Fusarium infection
     Dosage: UNK
     Route: 048
  2. POSACONAZOLE [Suspect]
     Active Substance: POSACONAZOLE
     Indication: Scleritis
  3. AMPHOTERICIN B [Suspect]
     Active Substance: AMPHOTERICIN B
     Indication: Fusarium infection
     Dosage: UNK (SUB-TENON)
  4. AMPHOTERICIN B [Suspect]
     Active Substance: AMPHOTERICIN B
     Indication: Scleritis
  5. AMPHOTERICIN B [Suspect]
     Active Substance: AMPHOTERICIN B
     Indication: Fusarium infection
     Dosage: UNK
     Route: 065
  6. AMPHOTERICIN B [Suspect]
     Active Substance: AMPHOTERICIN B
     Indication: Scleritis
  7. VORICONAZOLE [Suspect]
     Active Substance: VORICONAZOLE
     Indication: Fusarium infection
     Dosage: UNK
     Route: 031
  8. VORICONAZOLE [Suspect]
     Active Substance: VORICONAZOLE
     Indication: Scleritis
     Dosage: UNK
     Route: 048
  9. VORICONAZOLE [Suspect]
     Active Substance: VORICONAZOLE
     Dosage: UNK
     Route: 042
  10. NATAMYCIN [Suspect]
     Active Substance: NATAMYCIN
     Indication: Fusarium infection
     Dosage: UNK
     Route: 061
  11. NATAMYCIN [Suspect]
     Active Substance: NATAMYCIN
     Indication: Scleritis

REACTIONS (6)
  - Cataract operation [Unknown]
  - Corneal neovascularisation [Unknown]
  - Keratic precipitates [Unknown]
  - Photophobia [Unknown]
  - Eye pain [Unknown]
  - Drug effective for unapproved indication [Unknown]
